FAERS Safety Report 8256952-5 (Version None)
Quarter: 2012Q2

REPORT INFORMATION
  Report Type: 
  Country: None (occurrence: None)
  Receive Date: 20120403
  Receipt Date: 20120329
  Transmission Date: 20120825
  Serious: Yes (Death)
  Sender: FDA-Public Use
  Company Number: US-PFIZER INC-2012081410

PATIENT
  Age: 44 Year
  Sex: Female

DRUGS (2)
  1. VERAPAMIL HCL [Suspect]
     Dosage: UNK
  2. AMITRIPTYLINE HCL [Suspect]
     Dosage: UNK

REACTIONS (2)
  - TOXICITY TO VARIOUS AGENTS [None]
  - SHOCK [None]
